FAERS Safety Report 17197895 (Version 7)
Quarter: 2020Q2

REPORT INFORMATION
  Report Type: Report from Study
  Country: US (occurrence: US)
  Receive Date: 20191224
  Receipt Date: 20200625
  Transmission Date: 20200713
  Serious: Yes (Other)
  Sender: FDA-Public Use
  Company Number: NVSC2019US078724

PATIENT
  Age: 73 Year
  Sex: Male

DRUGS (3)
  1. BEOVU [Suspect]
     Active Substance: BROLUCIZUMAB-DBLL
     Indication: NEOVASCULAR AGE-RELATED MACULAR DEGENERATION
     Dosage: 6 MG, ONE SINGLE DOSE
     Route: 047
     Dates: start: 20191204
  2. BEOVU [Suspect]
     Active Substance: BROLUCIZUMAB-DBLL
     Dosage: 6 MG, ONE SINGLE DOSE
     Route: 047
     Dates: start: 202001
  3. BEOVU [Suspect]
     Active Substance: BROLUCIZUMAB-DBLL
     Dosage: 6 MG, ONE SINGLE DOSE
     Route: 047
     Dates: start: 20200517

REACTIONS (7)
  - Hypoacusis [Unknown]
  - Malaise [Unknown]
  - Eye injury [Unknown]
  - Eye discharge [Unknown]
  - Vision blurred [Recovered/Resolved]
  - Cough [Recovering/Resolving]
  - Visual impairment [Unknown]

NARRATIVE: CASE EVENT DATE: 20191205
